FAERS Safety Report 7967545-9 (Version None)
Quarter: 2011Q4

REPORT INFORMATION
  Report Type: 
  Country: None (occurrence: None)
  Receive Date: 20111209
  Receipt Date: 20111129
  Transmission Date: 20120403
  Serious: Yes (Life-Threatening, Hospitalization)
  Sender: FDA-Public Use
  Company Number: US-JNJFOC-20060604549

PATIENT
  Sex: Male
  Weight: 68.49 kg

DRUGS (8)
  1. REMICADE [Suspect]
     Indication: ANKYLOSING SPONDYLITIS
     Route: 042
     Dates: start: 20060518
  2. MEDROL [Suspect]
     Indication: ANKYLOSING SPONDYLITIS
     Route: 048
  3. REMICADE [Suspect]
     Route: 042
     Dates: start: 20060601
  4. SOLU-MEDROL [Suspect]
     Indication: RHEUMATOID ARTHRITIS
     Route: 042
     Dates: start: 20060519, end: 20060520
  5. HUMIRA [Suspect]
     Indication: ANKYLOSING SPONDYLITIS
     Route: 058
  6. METHOTREXATE [Concomitant]
     Indication: RHEUMATOID ARTHRITIS
     Route: 058
  7. REMICADE [Suspect]
     Indication: RHEUMATOID ARTHRITIS
     Route: 042
     Dates: start: 20060601
  8. REMICADE [Suspect]
     Route: 042
     Dates: start: 20060518

REACTIONS (1)
  - PNEUMONIA LEGIONELLA [None]
